FAERS Safety Report 6181484-8 (Version None)
Quarter: 2009Q2

REPORT INFORMATION
  Report Type: 
  Country: None (occurrence: None)
  Receive Date: 20090501
  Receipt Date: 20090415
  Transmission Date: 20091009
  Serious: Yes (Other)
  Sender: FDA-Public Use
  Company Number: 2009AL002207

PATIENT
  Age: 53 Year
  Sex: Male

DRUGS (2)
  1. SERTRALINE HYDROCHLORIDE [Suspect]
     Indication: DEPRESSION
     Dosage: 100 MG; QD
  2. NAPROXEN [Suspect]
     Dosage: 500 MG; BID

REACTIONS (11)
  - CARCINOMA IN SITU [None]
  - DYSPNOEA [None]
  - HAEMATOCRIT DECREASED [None]
  - HAEMOGLOBIN DECREASED [None]
  - LIP AND/OR ORAL CAVITY CANCER [None]
  - OBSTRUCTIVE AIRWAYS DISORDER [None]
  - POST PROCEDURAL HAEMATOMA [None]
  - POST PROCEDURAL HAEMORRHAGE [None]
  - SERUM SEROTONIN DECREASED [None]
  - SQUAMOUS CELL CARCINOMA [None]
  - VON WILLEBRAND'S FACTOR ANTIGEN INCREASED [None]
